FAERS Safety Report 4386836-4 (Version None)
Quarter: 2004Q2

REPORT INFORMATION
  Report Type: 
  Country: None (occurrence: None)
  Receive Date: 20040622
  Receipt Date: 20040521
  Transmission Date: 20050107
  Serious: Yes (Hospitalization)
  Sender: FDA-Public Use
  Company Number: F01200401207

PATIENT
  Age: 55 Year
  Sex: Male

DRUGS (13)
  1. (OXALIPLATIN) - SOLUTION - 85 MG/M2 [Suspect]
     Indication: COLORECTAL CANCER
     Dosage: 85 MG/M2 Q2W    INTRAVENOUS NOS
     Route: 042
     Dates: start: 20040511, end: 20040511
  2. FLUOROURACIL [Suspect]
     Dosage: 400 MG/M2 BOLUS THEN 2400 MG/M2 AS 46 HOURS INFUSION Q2W
     Route: 042
     Dates: start: 20040511, end: 20040513
  3. (LEUCOVORIN) - SOLUTION - 350 MG [Suspect]
     Dosage: 350 MG Q2W, INTRAVENOUS
     Route: 042
     Dates: start: 20040511, end: 20040511
  4. IMMODIUM (LOPERAMIDE HYDROCHLORIDE) [Concomitant]
  5. MULTI-VITAMINS [Concomitant]
  6. VICODIN (HYDROCODONE TARTRATE+PARACETAMOL) [Concomitant]
  7. TILENOL [Concomitant]
  8. COMPAZINE [Concomitant]
  9. ATIVAN [Concomitant]
  10. LOMOTIL [Concomitant]
  11. SANDOSTATIN [Concomitant]
  12. TINCTURE OF OPIUM(OPIUM TINCTURE) [Concomitant]
  13. AVASTIN [Suspect]
     Dosage: 5 MG/KG OVER 30-90 MINUTES IV INFUSION ON DAY 1 Q2Q
     Route: 042
     Dates: start: 20040511, end: 20040511

REACTIONS (13)
  - ABDOMINAL ADHESIONS [None]
  - ATRIAL FLUTTER [None]
  - BLOOD CALCIUM DECREASED [None]
  - BLOOD POTASSIUM DECREASED [None]
  - BUNDLE BRANCH BLOCK LEFT [None]
  - BUNDLE BRANCH BLOCK RIGHT [None]
  - DEHYDRATION [None]
  - ENTEROCOLITIS HAEMORRHAGIC [None]
  - GASTRITIS [None]
  - HYPOVOLAEMIA [None]
  - PLATELET COUNT DECREASED [None]
  - SINUS TACHYCARDIA [None]
  - SMALL INTESTINAL OBSTRUCTION [None]
